FAERS Safety Report 8510556-5 (Version None)
Quarter: 2012Q3

REPORT INFORMATION
  Report Type: 
  Country: None (occurrence: None)
  Receive Date: 20120716
  Receipt Date: 20120705
  Transmission Date: 20120928
  Serious: Yes (Hospitalization, Other)
  Sender: FDA-Public Use
  Company Number: ES-BIOGENIDEC-2012BI017593

PATIENT
  Age: 32 Year
  Sex: Female

DRUGS (1)
  1. TYSABRI [Suspect]
     Indication: MULTIPLE SCLEROSIS
     Route: 042
     Dates: start: 20100701, end: 20120210

REACTIONS (3)
  - PROGRESSIVE MULTIFOCAL LEUKOENCEPHALOPATHY [None]
  - MULTIPLE SCLEROSIS [None]
  - GRAND MAL CONVULSION [None]
